FAERS Safety Report 7022401-8 (Version None)
Quarter: 2010Q3

REPORT INFORMATION
  Report Type: 
  Country: None (occurrence: None)
  Receive Date: 20100930
  Receipt Date: 20100928
  Transmission Date: 20110219
  Serious: Yes (Hospitalization)
  Sender: FDA-Public Use
  Company Number: US-PFIZER INC-2010123116

PATIENT
  Sex: Female

DRUGS (1)
  1. NORVASC [Suspect]

REACTIONS (5)
  - HYPERSENSITIVITY [None]
  - OEDEMA MOUTH [None]
  - RASH [None]
  - SPEECH DISORDER [None]
  - SWOLLEN TONGUE [None]
